FAERS Safety Report 22596440 (Version 1)
Quarter: 2023Q2

REPORT INFORMATION
  Report Type: Spontaneous
  Country: CA (occurrence: CA)
  Receive Date: 20230613
  Receipt Date: 20230613
  Transmission Date: 20230721
  Serious: Yes (Death)
  Sender: FDA-Public Use
  Company Number: CA-PFIZER INC-PV202300037991

PATIENT
  Age: 65 Year
  Sex: Male
  Weight: 92.1 kg

DRUGS (2)
  1. INLYTA [Suspect]
     Active Substance: AXITINIB
     Indication: Metastatic renal cell carcinoma
     Dosage: 5 MG, 2X/DAY
     Dates: start: 20230413
  2. METOCLOPRAMIDE [Concomitant]
     Active Substance: METOCLOPRAMIDE
     Dosage: 10 MG,EVERY 6H AND AS NEEDED(PRN),THERAPY 12 CYCLES
     Route: 048

REACTIONS (2)
  - Death [Fatal]
  - Off label use [Unknown]
